FAERS Safety Report 14075350 (Version 1)
Quarter: 2017Q4

REPORT INFORMATION
  Report Type: Spontaneous
  Country: NL (occurrence: NL)
  Receive Date: 20171011
  Receipt Date: 20171011
  Transmission Date: 20180321
  Serious: Yes (Other)
  Sender: FDA-Public Use
  Company Number: NL-TEVA-812956ROM

PATIENT

DRUGS (4)
  1. DICLOFENAC [Suspect]
     Active Substance: DICLOFENAC
     Indication: ABSCESS DRAINAGE
     Route: 065
  2. MORPHINE [Suspect]
     Active Substance: MORPHINE
     Indication: FISTULOTOMY
  3. DICLOFENAC [Suspect]
     Active Substance: DICLOFENAC
     Indication: FISTULOTOMY
  4. MORPHINE [Suspect]
     Active Substance: MORPHINE
     Indication: ABSCESS DRAINAGE
     Route: 065

REACTIONS (1)
  - Vulvovaginal mycotic infection [Unknown]
